FAERS Safety Report 7295262-X (Version None)
Quarter: 2011Q1

REPORT INFORMATION
  Report Type: 
  Country: None (occurrence: None)
  Receive Date: 20110216
  Receipt Date: 20110208
  Transmission Date: 20110831
  Serious: Yes (Hospitalization)
  Sender: FDA-Public Use
  Company Number: TR-MEDIMMUNE-MEDI-0012351

PATIENT
  Sex: Female
  Weight: 6.6 kg

DRUGS (1)
  1. SYNAGIS [Suspect]
     Route: 030
     Dates: start: 20101201, end: 20101201

REACTIONS (8)
  - SOMNOLENCE [None]
  - COUGH [None]
  - VOMITING [None]
  - RHINITIS [None]
  - PYREXIA [None]
  - SHUNT INFECTION [None]
  - DECREASED APPETITE [None]
  - SHUNT OCCLUSION [None]
